FAERS Safety Report 7098579-7 (Version None)
Quarter: 2010Q4

REPORT INFORMATION
  Report Type: 
  Country: None (occurrence: None)
  Receive Date: 20101112
  Receipt Date: 20101105
  Transmission Date: 20110411
  Serious: Yes (Other)
  Sender: FDA-Public Use
  Company Number: CHPA2010US17324

PATIENT
  Age: 70 Year
  Sex: Female
  Weight: 92.971 kg

DRUGS (1)
  1. VOLTAREN [Suspect]
     Indication: BONE DISORDER
     Dosage: UNK, BID
     Route: 061
     Dates: start: 20100101, end: 20100101

REACTIONS (2)
  - OFF LABEL USE [None]
  - SURGERY [None]
